FAERS Safety Report 4281224-3 (Version None)
Quarter: 2004Q1

REPORT INFORMATION
  Report Type: 
  Country: None (occurrence: None)
  Receive Date: 20040129
  Receipt Date: 20040114
  Transmission Date: 20041129
  Serious: Yes (Hospitalization)
  Sender: FDA-Public Use
  Company Number: WAES 0401USA01022

PATIENT
  Age: 76 Year
  Sex: Male

DRUGS (11)
  1. ASPIRIN [Concomitant]
  2. ZOCOR [Suspect]
     Indication: DYSLIPIDAEMIA
     Route: 048
     Dates: start: 19940101
  3. ZOCOR [Suspect]
     Route: 048
     Dates: start: 20020101, end: 20031105
  4. ZOCOR [Suspect]
     Route: 048
     Dates: start: 20031215, end: 20031217
  5. ZOCOR [Suspect]
     Route: 048
     Dates: end: 20020101
  6. ZOCOR [Suspect]
     Indication: BLOOD CHOLESTEROL INCREASED
     Route: 048
     Dates: start: 19940101
  7. ZOCOR [Suspect]
     Route: 048
     Dates: start: 20020101, end: 20031105
  8. ZOCOR [Suspect]
     Route: 048
     Dates: start: 20031215, end: 20031217
  9. ZOCOR [Suspect]
     Route: 048
     Dates: end: 20020101
  10. VITAMINS (UNSPECIFIED) [Concomitant]
  11. COUMADIN [Suspect]
     Dates: start: 20031001

REACTIONS (13)
  - ADVERSE EVENT [None]
  - ATRIAL FIBRILLATION [None]
  - CYANOSIS [None]
  - DRUG INTERACTION [None]
  - DRUG INTOLERANCE [None]
  - GRIP STRENGTH DECREASED [None]
  - MUSCULAR WEAKNESS [None]
  - MYALGIA [None]
  - PAIN IN EXTREMITY [None]
  - PHARYNGOLARYNGEAL PAIN [None]
  - SUPRAVENTRICULAR TACHYCARDIA [None]
  - TACHYCARDIA [None]
  - VENTRICULAR EXTRASYSTOLES [None]
